FAERS Safety Report 4561448-8 (Version None)
Quarter: 2005Q1

REPORT INFORMATION
  Report Type: 
  Country: None (occurrence: None)
  Receive Date: 20050121
  Receipt Date: 20050103
  Transmission Date: 20050727
  Serious: Yes (Hospitalization, Other)
  Sender: FDA-Public Use
  Company Number: USA040875564

PATIENT
  Age: 81 Year
  Sex: Female
  Weight: 46 kg

DRUGS (5)
  1. FORTEO [Suspect]
     Dates: start: 20040429
  2. LIPITOR [Concomitant]
  3. LANOXIN (DIGOXIN STREULI) [Concomitant]
  4. SYNTHROID [Concomitant]
  5. ASPIRIN [Concomitant]

REACTIONS (4)
  - NAUSEA [None]
  - NON-SMALL CELL LUNG CANCER [None]
  - OESOPHAGITIS [None]
  - SKIN REACTION [None]
